FAERS Safety Report 5737002-9 (Version None)
Quarter: 2008Q2

REPORT INFORMATION
  Report Type: 
  Country: None (occurrence: None)
  Receive Date: 20080514
  Receipt Date: 20080512
  Transmission Date: 20081010
  Serious: Yes (Life-Threatening, Hospitalization)
  Sender: FDA-Public Use
  Company Number: DE-BRISTOL-MYERS SQUIBB COMPANY-14187900

PATIENT
  Age: 49 Year
  Sex: Female

DRUGS (10)
  1. PACLITAXEL [Suspect]
     Indication: FEMALE REPRODUCTIVE NEOPLASM
     Route: 042
     Dates: start: 20080117
  2. CARBOPLATIN [Suspect]
     Indication: FEMALE REPRODUCTIVE NEOPLASM
     Dosage: FORM INJECTION; 1 DOSAGE FORM= AUC 5 CYCLIC.
     Route: 042
     Dates: start: 20080117
  3. PAZOPANIB [Suspect]
     Indication: FEMALE REPRODUCTIVE NEOPLASM
     Route: 048
     Dates: start: 20080117
  4. DIOVAN HCT [Concomitant]
     Dates: start: 20080318
  5. PANTOPRAZOLE SODIUM [Concomitant]
  6. NULYTELY [Concomitant]
  7. OXYCODONE HCL [Concomitant]
  8. DANAPAROID SODIUM [Concomitant]
  9. CALCIUM [Concomitant]
  10. ACETYLCYSTEINE [Concomitant]

REACTIONS (1)
  - INTESTINAL PERFORATION [None]
